FAERS Safety Report 10422325 (Version 1)
Quarter: 2014Q3

REPORT INFORMATION
  Report Type: Spontaneous
  Country: TR (occurrence: TR)
  Receive Date: 20140901
  Receipt Date: 20140901
  Transmission Date: 20150326
  Serious: Yes (Other)
  Sender: FDA-Public Use
  Company Number: PHHY2014TR109056

PATIENT
  Age: 63 Year
  Sex: Female
  Weight: 72 kg

DRUGS (8)
  1. ZENTIUS [Concomitant]
     Active Substance: CITALOPRAM HYDROBROMIDE
     Dosage: UNK
  2. ACLASTA [Suspect]
     Active Substance: ZOLEDRONIC ACID
     Indication: OSTEOPOROSIS
     Dosage: UNK
     Route: 042
     Dates: start: 20140822
  3. SULIDIN [Concomitant]
     Dosage: UNK , 50 GRAM
  4. APROL [Concomitant]
     Dosage: UNK
  5. DORSILON (ACETAMINOPHEN\MEPHENOXALONE) [Suspect]
     Active Substance: ACETAMINOPHEN\MEPHENOXALONE
     Dosage: UNK
  6. VITAMIN D3 [Concomitant]
     Active Substance: CHOLECALCIFEROL
     Dosage: UNK
  7. PAROL PLUS [Concomitant]
     Dosage: UNK
  8. DEVIT D3 [Concomitant]
     Dosage: UNK

REACTIONS (3)
  - Lacrimation increased [Unknown]
  - Aphonia [Recovering/Resolving]
  - Laryngeal oedema [Recovering/Resolving]

NARRATIVE: CASE EVENT DATE: 20140823
